FAERS Safety Report 4872203-3 (Version None)
Quarter: 2006Q1

REPORT INFORMATION
  Report Type: 
  Country: None (occurrence: None)
  Receive Date: 20060104
  Receipt Date: 20050708
  Transmission Date: 20060701
  Serious: Yes (Hospitalization, Other)
  Sender: FDA-Public Use
  Company Number: US-NOVOPROD-245399

PATIENT
  Age: 13 Year
  Sex: Male

DRUGS (4)
  1. NORDITROPIN NORDIFLEX [Suspect]
     Indication: GROWTH HORMONE DEFICIENCY
     Dosage: 1.575 MG, QD
     Route: 058
     Dates: start: 20050602, end: 20050705
  2. LISINOPRIL [Concomitant]
     Indication: HYPERTENSION
     Dosage: 15 MG, QD
     Route: 048
  3. PREDNISONE [Concomitant]
     Indication: SYSTEMIC LUPUS ERYTHEMATOSUS
     Dosage: 5 MG, BID QOD
     Route: 048
  4. ASPIRIN [Concomitant]
     Indication: SYSTEMIC LUPUS ERYTHEMATOSUS
     Dosage: 81 MG, QD
     Route: 048

REACTIONS (10)
  - ANAEMIA [None]
  - COAGULOPATHY [None]
  - CONDITION AGGRAVATED [None]
  - HAEMATURIA [None]
  - HYPERTENSION [None]
  - LUPUS NEPHRITIS [None]
  - PITTING OEDEMA [None]
  - PROTEINURIA [None]
  - SYSTEMIC LUPUS ERYTHEMATOSUS [None]
  - WEIGHT INCREASED [None]
